FAERS Safety Report 6086597-7 (Version None)
Quarter: 2009Q1

REPORT INFORMATION
  Report Type: 
  Country: None (occurrence: None)
  Receive Date: 20090223
  Receipt Date: 20090213
  Transmission Date: 20090719
  Serious: Yes (Hospitalization)
  Sender: FDA-Public Use
  Company Number: FR-PFIZER INC-2009170623

PATIENT

DRUGS (7)
  1. CELEBREX [Suspect]
     Dosage: 100 MG, 1X/DAY
     Route: 048
     Dates: start: 20081216, end: 20081230
  2. TRIATEC [Concomitant]
     Dosage: 2.5 MG, 1X/DAY
     Route: 048
  3. PREVISCAN [Concomitant]
     Dosage: 20 MG, 1X/DAY
     Route: 048
  4. ZANIDIP [Concomitant]
     Dosage: 20 MG, 1X/DAY
     Route: 048
     Dates: end: 20090114
  5. DI-ANTALVIC [Concomitant]
  6. NITRODERM [Concomitant]
     Dosage: 5 MG, 1X/DAY
     Route: 062
     Dates: end: 20090120
  7. LASIX [Concomitant]
     Dosage: 40 MG, 1X/DAY
     Route: 048
     Dates: start: 20090114, end: 20090121

REACTIONS (2)
  - CARDIAC FAILURE [None]
  - PULMONARY OEDEMA [None]
